FAERS Safety Report 8018192-4 (Version None)
Quarter: 2012Q1

REPORT INFORMATION
  Report Type: 
  Country: None (occurrence: None)
  Receive Date: 20120103
  Receipt Date: 20111230
  Transmission Date: 20120608
  Serious: Yes (Death, Hospitalization, Other)
  Sender: FDA-Public Use
  Company Number: US-BRISTOL-MYERS SQUIBB COMPANY-16144222

PATIENT
  Age: 58 Year
  Sex: Male
  Weight: 88 kg

DRUGS (11)
  1. ZIAC [Concomitant]
  2. SIMVASTATIN [Concomitant]
  3. PRAVASTATIN SODIUM [Concomitant]
  4. CLOPIDOGREL BISULFATE [Concomitant]
  5. RANITIDINE [Concomitant]
  6. PREDNISONE TAB [Concomitant]
  7. PLAVIX [Concomitant]
  8. ASPIRIN [Concomitant]
  9. YERVOY [Suspect]
     Indication: METASTATIC MALIGNANT MELANOMA
     Dosage: RECEIVED ALL FOUR DOSES,LAST DOSE WAS THE WEEK OF 26SEP2011 DOSAGE:3MG/KG IN 500ML IVS OVER 90MINS
     Route: 042
     Dates: start: 20110722, end: 20110928
  10. POTASSIUM [Concomitant]
  11. LORAZEPAM [Concomitant]

REACTIONS (3)
  - INTESTINAL PERFORATION [None]
  - SEPSIS [None]
  - COLITIS [None]
